FAERS Safety Report 9693381 (Version 1)
Quarter: 2013Q4

REPORT INFORMATION
  Report Type: Spontaneous
  Country: US (occurrence: US)
  Receive Date: 20131118
  Receipt Date: 20131118
  Transmission Date: 20140711
  Serious: Yes (Other)
  Sender: FDA-Public Use
  Company Number: US-GLAXOSMITHKLINE-A1047156A

PATIENT
  Age: 61 Year
  Sex: Female

DRUGS (15)
  1. BENLYSTA [Suspect]
     Indication: SYSTEMIC LUPUS ERYTHEMATOSUS
     Dosage: 120MG EVERY 28 DAYS
     Route: 042
     Dates: start: 201307
  2. ASPIRIN [Concomitant]
  3. PLAVIX [Concomitant]
  4. CARVEDILOL [Concomitant]
  5. ATORVASTATIN [Concomitant]
  6. DIGOXIN [Concomitant]
  7. CARDIZEM CD [Concomitant]
  8. BUPROPION [Concomitant]
  9. LEVOTHYROXINE [Concomitant]
  10. LOSARTAN POTASSIUM [Concomitant]
  11. CITALOPRAM [Concomitant]
  12. PREDNISONE [Concomitant]
  13. MULTIVITAMIN [Concomitant]
  14. OMEGA 3 [Concomitant]
  15. PROCRIT [Concomitant]

REACTIONS (2)
  - Tooth infection [Not Recovered/Not Resolved]
  - Toothache [Unknown]
